FAERS Safety Report 8186921-5 (Version None)
Quarter: 2012Q1

REPORT INFORMATION
  Report Type: 
  Country: None (occurrence: None)
  Receive Date: 20120213
  Receipt Date: 20111019
  Transmission Date: 20120608
  Serious: No
  Sender: FDA-Public Use
  Company Number: 1000024811

PATIENT
  Age: 39 Year
  Sex: Female

DRUGS (3)
  1. OXYCODONE HCL [Concomitant]
  2. ZOLOFT [Concomitant]
  3. SAVELLA [Suspect]
     Indication: FIBROMYALGIA
     Dosage: 12.5 (12.5 MG, 1 IN 1 D), ORAL
     Route: 048
     Dates: start: 20111001, end: 20111001

REACTIONS (1)
  - HYPOAESTHESIA ORAL [None]
